FAERS Safety Report 16940879 (Version 1)
Quarter: 2019Q4

REPORT INFORMATION
  Report Type: Spontaneous
  Country: GB (occurrence: GB)
  Receive Date: 20191021
  Receipt Date: 20191021
  Transmission Date: 20200122
  Serious: Yes (Other)
  Sender: FDA-Public Use
  Company Number: GB-MYLANLABS-2019M1098077

PATIENT
  Age: 52 Year
  Sex: Female
  Weight: 97 kg

DRUGS (28)
  1. CIPROFLOXACIN. [Concomitant]
     Active Substance: CIPROFLOXACIN
     Dosage: 2 DOSAGE FORM, QD
     Dates: start: 20190521, end: 20190526
  2. MORPHINE SULFATE. [Concomitant]
     Active Substance: MORPHINE SULFATE
     Dosage: 5ML MAX 4 HOURLY
     Dates: start: 20190228
  3. PREGABALIN. [Concomitant]
     Active Substance: PREGABALIN
     Dosage: ACCORDANCE WITH NEUROPATHIC P...
     Dates: start: 20190111
  4. ESTRADIOL. [Concomitant]
     Active Substance: ESTRADIOL
     Dosage: FOR TWO WEEKS
     Route: 067
     Dates: start: 20190710, end: 20190711
  5. DOXYCYCLINE. [Suspect]
     Active Substance: DOXYCYCLINE
     Indication: PRODUCT USED FOR UNKNOWN INDICATION
     Dosage: 100 MG,2 NOW THEN 1 DAILY
     Dates: start: 20190801
  6. NOVOFEM [Concomitant]
     Active Substance: ESTRADIOL HEMIHYDRATE\NORETHINDRONE ACETATE
     Dosage: 1 DOSAGE FORM, QD
     Dates: start: 20190612
  7. ACETYLSALICYLIC ACID [Concomitant]
     Active Substance: ASPIRIN
     Dosage: 1 DOSAGE FORM, QD
     Dates: start: 20190111
  8. LANSOPRAZOLE. [Concomitant]
     Active Substance: LANSOPRAZOLE
     Dosage: MORNING WITH WATER
     Dates: start: 20190111
  9. VARENICLINE [Concomitant]
     Active Substance: VARENICLINE
     Dosage: AS SHOWN ON THE PACK
     Dates: start: 20190730
  10. ENALAPRIL [Concomitant]
     Active Substance: ENALAPRIL
     Dosage: 1 DOSAGE FORM, QD
     Dates: start: 20190329
  11. TRESIBA [Concomitant]
     Active Substance: INSULIN DEGLUDEC
     Dosage: 1 DOSAGE FORM, QD
     Dates: start: 20190329
  12. HUMALOG [Concomitant]
     Active Substance: INSULIN LISPRO
     Dosage: USE AS DIRECTED
     Dates: start: 20190417
  13. LEVOTHYROXINE. [Concomitant]
     Active Substance: LEVOTHYROXINE
     Dosage: 1 DOSAGE FORM, QD
     Dates: start: 20190329
  14. AMITRIPTYLINE HYDROCHLORIDE. [Concomitant]
     Active Substance: AMITRIPTYLINE HYDROCHLORIDE
     Dosage: EVENING 2 HOURS BEFORE BED
     Dates: start: 20190111
  15. DEXTROGEL [Concomitant]
     Dosage: USE AS DIRECTED
     Dates: start: 20190603, end: 20190604
  16. PURIFIED WATER [Concomitant]
     Active Substance: WATER
     Dosage: USE AS DIRECTED
     Dates: start: 20190705, end: 20190802
  17. SIMVASTATIN. [Concomitant]
     Active Substance: SIMVASTATIN
     Dosage: 1 DOSAGE FORM, PMNIGHT
     Dates: start: 20190329
  18. ZOPICLONE [Concomitant]
     Active Substance: ZOPICLONE
     Dosage: NIGHT
     Dates: start: 20190111
  19. BISOPROLOL [Concomitant]
     Active Substance: BISOPROLOL
     Dosage: 1 DOSAGE FORM, QD
     Dates: start: 20190329
  20. CITALOPRAM [Concomitant]
     Active Substance: CITALOPRAM HYDROBROMIDE
     Dosage: 2 DOSAGE FORM, QD
     Dates: start: 20190403
  21. CLOTRIMAZOLE. [Concomitant]
     Active Substance: CLOTRIMAZOLE
     Dosage: APPLY 2-3 TIMES/DAY
     Dates: start: 20190612, end: 20190710
  22. HYDROCORTISONE. [Concomitant]
     Active Substance: HYDROCORTISONE
     Dosage: 2 DOSAGE FORM, QD
     Dates: start: 20190710, end: 20190717
  23. METOCLOPRAMIDE. [Concomitant]
     Active Substance: METOCLOPRAMIDE
     Dosage: PRN,TAKE ONE 3-4 TIMES/DAY
     Dates: start: 20190111
  24. DICLOFENAC DIETHYLAMINE [Concomitant]
     Active Substance: DICLOFENAC DIETHYLAMINE
     Dosage: APPLY
     Dates: start: 20180822
  25. ELLESTE DUET [Concomitant]
     Active Substance: ESTRADIOL\NORETHINDRONE ACETATE
     Indication: HORMONE REPLACEMENT THERAPY
     Dosage: 1ST LINE SEQUENTIAL COMBINED HRT
     Dates: start: 20190102
  26. MIRABEGRON [Concomitant]
     Active Substance: MIRABEGRON
     Dosage: AS PER CONSULTANT
     Dates: start: 20190111
  27. EMPAGLIFLOZIN [Concomitant]
     Active Substance: EMPAGLIFLOZIN
     Dosage: 1 DOSAGE FORM, QD
     Dates: start: 20190204
  28. OVESTIN [Concomitant]
     Active Substance: ESTRIOL
     Dosage: APPLY AT NIGHT
     Dates: start: 20190723, end: 20190724

REACTIONS (2)
  - Vomiting [Recovered/Resolved]
  - Abdominal pain [Unknown]

NARRATIVE: CASE EVENT DATE: 20190802
